FAERS Safety Report 7046364-4 (Version None)
Quarter: 2010Q4

REPORT INFORMATION
  Report Type: 
  Country: None (occurrence: None)
  Receive Date: 20101014
  Receipt Date: 20100929
  Transmission Date: 20110411
  Serious: Yes (Hospitalization, Other)
  Sender: FDA-Public Use
  Company Number: US-BRISTOL-MYERS SQUIBB COMPANY-15258635

PATIENT
  Sex: Female

DRUGS (2)
  1. IXEMPRA KIT [Suspect]
     Dosage: 1 DF=2 DOSES
  2. XELODA [Suspect]
     Dosage: 1 DF=2 DOSES

REACTIONS (1)
  - INTESTINAL PERFORATION [None]
